FAERS Safety Report 23946891 (Version 1)
Quarter: 2024Q2

REPORT INFORMATION
  Report Type: Spontaneous
  Country: NL (occurrence: NL)
  Receive Date: 20240606
  Receipt Date: 20240606
  Transmission Date: 20240716
  Serious: Yes (Hospitalization, Disabling, Other)
  Sender: FDA-Public Use
  Company Number: None

PATIENT
  Age: 36 Year
  Sex: Female
  Weight: 62 kg

DRUGS (3)
  1. DULOXETINE HYDROCHLORIDE [Suspect]
     Active Substance: DULOXETINE HYDROCHLORIDE
     Indication: Depression
     Dosage: 1 DOSAGE FORM, TID (1 X PER DAY 60 MG / 2 X PER DAY 30 MG)
     Route: 065
     Dates: start: 20130101
  2. POLYETHYLENE GLYCOLS [Suspect]
     Active Substance: POLYETHYLENE GLYCOLS
     Indication: Constipation
     Dosage: 1 DOSAGE FORM, TID (1 SACHET, EVERY 8 HRS)
     Route: 065
     Dates: start: 20230201
  3. DIAZEPAM [Suspect]
     Active Substance: DIAZEPAM
     Indication: Restlessness
     Dosage: 5 MG, TID (3X PER DAY 1 TABLET, EVERY 8 HRS)
     Route: 065
     Dates: start: 19950202

REACTIONS (5)
  - Migraine [Not Recovered/Not Resolved]
  - Headache [Not Recovered/Not Resolved]
  - Hypertension [Not Recovered/Not Resolved]
  - Muscle tightness [Not Recovered/Not Resolved]
  - Maternal exposure during pregnancy [Unknown]
